APPROVED DRUG PRODUCT: ETOPOPHOS PRESERVATIVE FREE
Active Ingredient: ETOPOSIDE PHOSPHATE
Strength: EQ 100MG BASE/VIAL
Dosage Form/Route: INJECTABLE;INJECTION
Application: N020457 | Product #001
Applicant: CHEPLAPHARM ARZNEIMITTEL GMBH
Approved: May 17, 1996 | RLD: Yes | RS: Yes | Type: RX